FAERS Safety Report 6888594-8 (Version None)
Quarter: 2010Q3

REPORT INFORMATION
  Report Type: 
  Country: None (occurrence: None)
  Receive Date: 20100730
  Receipt Date: 20071002
  Transmission Date: 20110219
  Serious: No
  Sender: FDA-Public Use
  Company Number: US-PFIZER INC-2007082584

PATIENT
  Sex: Female
  Weight: 54.5 kg

DRUGS (2)
  1. LIPITOR [Suspect]
     Indication: BLOOD CHOLESTEROL INCREASED
     Dates: start: 20020101, end: 20070930
  2. METOPROLOL TARTRATE [Concomitant]
     Indication: ARRHYTHMIA

REACTIONS (4)
  - ABDOMINAL DISTENSION [None]
  - BLOOD BILIRUBIN INCREASED [None]
  - FLATULENCE [None]
  - MYALGIA [None]
